FAERS Safety Report 19840561 (Version 1)
Quarter: 2021Q3

REPORT INFORMATION
  Report Type: Other
  Country: US (occurrence: US)
  Receive Date: 20210916
  Receipt Date: 20210916
  Transmission Date: 20211014
  Serious: Yes (Other)
  Sender: FDA-Public Use
  Company Number: US-NAVINTA LLC-000196

PATIENT
  Age: 81 Year
  Sex: Male

DRUGS (4)
  1. DAPSONE. [Suspect]
     Active Substance: DAPSONE
     Indication: PEMPHIGOID
  2. LIDOCAINE. [Suspect]
     Active Substance: LIDOCAINE
     Indication: NERVE BLOCK
     Dosage: 5 ML
  3. ROPIVACAINE. [Suspect]
     Active Substance: ROPIVACAINE HYDROCHLORIDE
     Indication: NERVE BLOCK
     Dosage: 30 ML
  4. FENTANYL. [Suspect]
     Active Substance: FENTANYL
     Indication: ANXIETY
     Dosage: 25 MCG

REACTIONS (1)
  - Methaemoglobinaemia [Recovered/Resolved]
